FAERS Safety Report 6591040-5 (Version None)
Quarter: 2010Q1

REPORT INFORMATION
  Report Type: 
  Country: None (occurrence: None)
  Receive Date: 20100219
  Receipt Date: 20100216
  Transmission Date: 20100710
  Serious: Yes (Death, Hospitalization, Other)
  Sender: FDA-Public Use
  Company Number: PL-ROXANE LABORATORIES, INC.-2010-RO-00168RO

PATIENT
  Sex: Male

DRUGS (5)
  1. METHADONE HCL [Suspect]
     Indication: DRUG EXPOSURE VIA BREAST MILK
     Route: 063
  2. METHADONE HCL [Suspect]
     Indication: DRUG EXPOSURE DURING PREGNANCY
     Route: 064
  3. METHADONE HCL [Suspect]
     Indication: OFF LABEL USE
     Route: 048
  4. CHLORPROMAZINE [Suspect]
     Indication: WITHDRAWAL SYNDROME
     Route: 042
  5. PHENOBARBITAL TAB [Suspect]
     Indication: WITHDRAWAL SYNDROME
     Route: 042

REACTIONS (14)
  - ASTHENIA [None]
  - DEATH NEONATAL [None]
  - DIARRHOEA [None]
  - DIARRHOEA NEONATAL [None]
  - DRUG TOXICITY [None]
  - DRUG WITHDRAWAL SYNDROME NEONATAL [None]
  - HYPOTONIA [None]
  - HYPOTONIA NEONATAL [None]
  - MATERNAL DRUGS AFFECTING FOETUS [None]
  - OBSTRUCTIVE AIRWAYS DISORDER [None]
  - PALLOR [None]
  - VOMITING [None]
  - VOMITING NEONATAL [None]
  - WITHDRAWAL SYNDROME [None]
